FAERS Safety Report 20051812 (Version 1)
Quarter: 2021Q4

REPORT INFORMATION
  Report Type: Spontaneous
  Country: CA (occurrence: CA)
  Receive Date: 20211110
  Receipt Date: 20211110
  Transmission Date: 20220303
  Serious: Yes (Disabling, Other)
  Sender: FDA-Public Use
  Company Number: CA-SA-2021SA366051

PATIENT
  Age: 37 Year
  Sex: Female

DRUGS (17)
  1. AUBAGIO [Suspect]
     Active Substance: TERIFLUNOMIDE
     Indication: Multiple sclerosis
     Dosage: UNK
     Route: 065
     Dates: start: 201908
  2. PINAVERIUM BROMIDE [Suspect]
     Active Substance: PINAVERIUM BROMIDE
     Indication: Irritable bowel syndrome
     Dosage: UNK
     Route: 065
     Dates: start: 2021
  3. METAMUCIL [Suspect]
     Active Substance: PLANTAGO SEED
     Indication: Frequent bowel movements
     Dosage: UNK
     Dates: start: 2021, end: 2021
  4. METAMUCIL [Suspect]
     Active Substance: PLANTAGO SEED
     Dosage: UNK UNK, QD
     Dates: start: 2021
  5. APO VALACICLOVIR [Concomitant]
     Dosage: UNK
  6. TOZINAMERAN [Concomitant]
     Active Substance: TOZINAMERAN
     Indication: COVID-19 immunisation
     Dosage: 1 DF, 1X (SINGLE); DOSE 1
     Dates: start: 20210430, end: 20210430
  7. CITALOPRAM [Concomitant]
     Active Substance: CITALOPRAM HYDROBROMIDE
     Dosage: UNK
     Dates: start: 202003
  8. CELECOXIB [Concomitant]
     Active Substance: CELECOXIB
     Indication: Depression
     Dosage: UNK
     Dates: start: 2010
  9. MELATONIN [Concomitant]
     Active Substance: MELATONIN
     Indication: Sleep disorder
     Dosage: 10 MG, HS
     Dates: start: 2020
  10. MELATONIN [Concomitant]
     Active Substance: MELATONIN
     Dosage: 5 MG
     Dates: start: 2021
  11. PANTOPRAZOLE SODIUM [Concomitant]
     Active Substance: PANTOPRAZOLE SODIUM
     Indication: Gastrooesophageal reflux disease
     Dosage: UNK
  12. PREGABALIN [Concomitant]
     Active Substance: PREGABALIN
     Indication: Restless legs syndrome
     Dosage: UNK
     Dates: start: 202001
  13. PREGABALIN [Concomitant]
     Active Substance: PREGABALIN
     Indication: Pain
  14. CETIRIZINE HYDROCHLORIDE [Concomitant]
     Active Substance: CETIRIZINE HYDROCHLORIDE
     Indication: Seasonal allergy
     Dosage: UNK
     Dates: start: 2010
  15. CETIRIZINE HYDROCHLORIDE [Concomitant]
     Active Substance: CETIRIZINE HYDROCHLORIDE
     Indication: Multiple allergies
  16. VITAMIN D NOS [Concomitant]
     Active Substance: VITAMIN D NOS
     Indication: Multiple sclerosis
     Dosage: UNK
     Dates: start: 201905
  17. METFORMIN [Concomitant]
     Active Substance: METFORMIN HYDROCHLORIDE
     Dosage: UNK
     Dates: end: 202003

REACTIONS (28)
  - Immunosuppression [Unknown]
  - Irritable bowel syndrome [Unknown]
  - Diarrhoea [Recovered/Resolved with Sequelae]
  - Frequent bowel movements [Not Recovered/Not Resolved]
  - Flatulence [Recovered/Resolved with Sequelae]
  - Abdominal distension [Recovered/Resolved with Sequelae]
  - Abdominal tenderness [Unknown]
  - Mucous stools [Unknown]
  - Constipation [Unknown]
  - Anal erythema [Unknown]
  - Decreased appetite [Recovered/Resolved]
  - Impaired work ability [Unknown]
  - Dehydration [Unknown]
  - Blood pressure decreased [Unknown]
  - Incontinence [Unknown]
  - Anxiety [Unknown]
  - Insomnia [Unknown]
  - Angiopathy [Unknown]
  - Anal incontinence [Unknown]
  - Burnout syndrome [Unknown]
  - Malaise [Unknown]
  - Fatigue [Unknown]
  - Disturbance in attention [Unknown]
  - Emotional disorder [Unknown]
  - Chills [Recovered/Resolved]
  - Asthenia [Recovered/Resolved]
  - Abnormal faeces [Unknown]
  - Headache [Recovered/Resolved]

NARRATIVE: CASE EVENT DATE: 20210101
